FAERS Safety Report 5836578-0 (Version None)
Quarter: 2008Q3

REPORT INFORMATION
  Report Type: 
  Country: None (occurrence: None)
  Receive Date: 20080807
  Receipt Date: 20080728
  Transmission Date: 20090109
  Serious: Yes (Hospitalization)
  Sender: FDA-Public Use
  Company Number: ES-ELI_LILLY_AND_COMPANY-ES200807005626

PATIENT
  Age: 69 Year
  Sex: Female

DRUGS (3)
  1. FORTEO [Suspect]
     Indication: OSTEOPOROSIS
     Dosage: 20 UG, UNKNOWN
     Route: 058
     Dates: start: 20070912
  2. ANTIBIOTICS [Concomitant]
     Dosage: UNK, UNK
  3. ANALGESICS [Concomitant]
     Dosage: UNK, UNK

REACTIONS (3)
  - ROAD TRAFFIC ACCIDENT [None]
  - TOOTH INJURY [None]
  - TRAUMATIC HAEMATOMA [None]
